FAERS Safety Report 16830875 (Version 1)
Quarter: 2019Q3

REPORT INFORMATION
  Report Type: Spontaneous
  Country: US (occurrence: US)
  Receive Date: 20190920
  Receipt Date: 20190920
  Transmission Date: 20191005
  Serious: Yes (Hospitalization, Other)
  Sender: FDA-Public Use
  Company Number: US-ROCHE-2405121

PATIENT
  Sex: Female

DRUGS (2)
  1. HERCEPTIN [Suspect]
     Active Substance: TRASTUZUMAB
     Indication: OVARIAN CANCER
     Route: 042
     Dates: start: 201903
  2. PERJETA [Suspect]
     Active Substance: PERTUZUMAB
     Indication: OVARIAN CANCER
     Route: 042
     Dates: start: 201903

REACTIONS (4)
  - Diarrhoea [Unknown]
  - Disease progression [Unknown]
  - Myocardial infarction [Unknown]
  - Pruritus [Unknown]
